FAERS Safety Report 5710693-4 (Version None)
Quarter: 2008Q2

REPORT INFORMATION
  Report Type: 
  Country: None (occurrence: None)
  Receive Date: 20080421
  Receipt Date: 20080414
  Transmission Date: 20081010
  Serious: Yes (Hospitalization, Other)
  Sender: FDA-Public Use
  Company Number: US-RANBAXY-2008US-14127

PATIENT

DRUGS (3)
  1. ISOTRETINOIN [Suspect]
     Indication: ROSACEA
     Dosage: 40 MG, BID
     Route: 048
     Dates: start: 20080131, end: 20080225
  2. ISOTRETINOIN [Suspect]
     Dosage: 40 MG, QD
     Route: 048
     Dates: start: 20080306
  3. CRESTOR [Suspect]
     Indication: BLOOD CHOLESTEROL INCREASED

REACTIONS (2)
  - BLOOD TRIGLYCERIDES INCREASED [None]
  - ENCEPHALITIS VIRAL [None]
